FAERS Safety Report 20092178 (Version 1)
Quarter: 2021Q4

REPORT INFORMATION
  Report Type: Spontaneous
  Country: US (occurrence: None)
  Receive Date: 20211119
  Receipt Date: 20211119
  Transmission Date: 20220303
  Serious: Yes (Disabling)
  Sender: FDA-Public Use
  Company Number: None

PATIENT
  Age: 55 Year
  Sex: Female
  Weight: 65.25 kg

DRUGS (13)
  1. ACETAMINOPHEN\HYDROCODONE [Suspect]
     Active Substance: ACETAMINOPHEN\HYDROCODONE
     Indication: Fibromyalgia
     Dosage: OTHER QUANTITY : 112 TABLET(S);?FREQUENCY : EVERY 4 HOURS;?
     Route: 048
  2. ACETAMINOPHEN\HYDROCODONE [Suspect]
     Active Substance: ACETAMINOPHEN\HYDROCODONE
     Indication: Spinal stenosis
  3. ACETAMINOPHEN\HYDROCODONE [Suspect]
     Active Substance: ACETAMINOPHEN\HYDROCODONE
     Indication: Osteoarthritis
  4. SIMVASTATIN [Concomitant]
     Active Substance: SIMVASTATIN
  5. HYDACLORAZIDE [Concomitant]
  6. ASPIRIN [Concomitant]
     Active Substance: ASPIRIN
  7. HYDROCODONE [Concomitant]
     Active Substance: HYDROCODONE
  8. MAGNESIUM [Concomitant]
     Active Substance: MAGNESIUM
  9. VITAMIN C [Concomitant]
     Active Substance: ASCORBIC ACID
  10. VITAMIN D NOS [Concomitant]
     Active Substance: VITAMIN D NOS
  11. IRON [Concomitant]
     Active Substance: IRON
  12. TYLENOL [Concomitant]
  13. ADVIL [Concomitant]
     Active Substance: IBUPROFEN

REACTIONS (3)
  - Headache [None]
  - Therapeutic product effect decreased [None]
  - Abdominal pain upper [None]

NARRATIVE: CASE EVENT DATE: 20211012
